FAERS Safety Report 20322159 (Version 1)
Quarter: 2022Q1

REPORT INFORMATION
  Report Type: Spontaneous
  Country: US (occurrence: US)
  Receive Date: 20220111
  Receipt Date: 20220111
  Transmission Date: 20220423
  Serious: Yes (Other)
  Sender: FDA-Public Use
  Company Number: US-BAYER-2022A002861

PATIENT
  Age: 69 Year
  Sex: Female

DRUGS (23)
  1. MIRALAX [Suspect]
     Active Substance: POLYETHYLENE GLYCOL 3350
     Dosage: UNK
     Route: 065
  2. GILOTRIF [Suspect]
     Active Substance: AFATINIB
     Indication: Non-small cell lung cancer
     Dosage: 20 MG, QD
     Route: 048
     Dates: start: 20160111
  3. GILOTRIF [Suspect]
     Active Substance: AFATINIB
     Indication: Metastases to bone
  4. ESCITALOPRAM [Concomitant]
     Active Substance: ESCITALOPRAM OXALATE
     Indication: Gastrointestinal disorder
     Dosage: UNK
  5. AZELASTINE [Concomitant]
     Active Substance: AZELASTINE
     Dosage: 1 DF, QD
  6. LINZESS [Concomitant]
     Active Substance: LINACLOTIDE
     Indication: Constipation
  7. METAMUCIL [Concomitant]
     Active Substance: PLANTAGO SEED
  8. FLUTICASONE [Concomitant]
     Active Substance: FLUTICASONE
  9. SYMBICORT [Concomitant]
     Active Substance: BUDESONIDE\FORMOTEROL FUMARATE DIHYDRATE
  10. VITAMIN B12 [Concomitant]
     Active Substance: CYANOCOBALAMIN
  11. TRETINOIN [Concomitant]
     Active Substance: TRETINOIN
  12. LOPERAMIDE HYDROCHLORIDE [Concomitant]
     Active Substance: LOPERAMIDE HYDROCHLORIDE
  13. DULERA [Concomitant]
     Active Substance: FORMOTEROL FUMARATE DIHYDRATE\MOMETASONE FUROATE
  14. VITAMIN D2 [Concomitant]
     Active Substance: ERGOCALCIFEROL
  15. RESTASIS [Concomitant]
     Active Substance: CYCLOSPORINE
  16. SYNTHROID [Concomitant]
     Active Substance: LEVOTHYROXINE SODIUM
  17. FLONASE ALLERGY RELIEF [Concomitant]
     Active Substance: FLUTICASONE PROPIONATE
  18. ALBUTEROL SULFATE [Concomitant]
     Active Substance: ALBUTEROL SULFATE
  19. FOLIC ACID [Concomitant]
     Active Substance: FOLIC ACID
  20. IMODIUM MULTI-SYMPTOM RELIEF [Concomitant]
     Active Substance: DIMETHICONE\LOPERAMIDE HYDROCHLORIDE
  21. DEXILANT [Concomitant]
     Active Substance: DEXLANSOPRAZOLE
  22. EUCERIN [SALICYLIC ACID] [Concomitant]
  23. VITAMINS NOS [Concomitant]
     Active Substance: VITAMINS

REACTIONS (9)
  - Small intestinal obstruction [Unknown]
  - Diarrhoea [Unknown]
  - Blood iron decreased [Unknown]
  - Blood magnesium decreased [Unknown]
  - Liver disorder [None]
  - Constipation [Unknown]
  - Onychomycosis [Unknown]
  - Colitis [Unknown]
  - Dehydration [Unknown]
